FAERS Safety Report 6848152-8 (Version None)
Quarter: 2010Q3

REPORT INFORMATION
  Report Type: 
  Country: None (occurrence: None)
  Receive Date: 20100716
  Receipt Date: 20100713
  Transmission Date: 20110219
  Serious: Yes (Death)
  Sender: FDA-Public Use
  Company Number: A0870516A

PATIENT
  Age: 75 Year
  Sex: Female

DRUGS (1)
  1. PROMACTA [Suspect]
     Route: 048
     Dates: start: 20090623, end: 20100604

REACTIONS (1)
  - CARDIAC FAILURE [None]
